FAERS Safety Report 13346030 (Version 1)
Quarter: 2017Q1

REPORT INFORMATION
  Report Type: Report from Study
  Country: US (occurrence: US)
  Receive Date: 20170317
  Receipt Date: 20170317
  Transmission Date: 20170428
  Serious: Yes (Hospitalization, Other)
  Sender: FDA-Public Use
  Company Number: US-GILEAD-2017-0262890

PATIENT
  Age: 60 Year
  Sex: Female

DRUGS (13)
  1. COUMADIN [Concomitant]
     Active Substance: WARFARIN SODIUM
  2. MULTIVITAMIN                       /00097801/ [Concomitant]
     Active Substance: VITAMINS
  3. CELLCEPT [Concomitant]
     Active Substance: MYCOPHENOLATE MOFETIL\MYCOPHENOLATE MOFETIL HYDROCHLORIDE
  4. AMBRISENTAN [Suspect]
     Active Substance: AMBRISENTAN
     Indication: PULMONARY ARTERIAL HYPERTENSION
     Dosage: 10 MG, QD
     Route: 065
     Dates: start: 20091210
  5. KLONOPIN [Concomitant]
     Active Substance: CLONAZEPAM
  6. PHENOBARBITAL. [Concomitant]
     Active Substance: PHENOBARBITAL
  7. LASIX [Concomitant]
     Active Substance: FUROSEMIDE
  8. TRAZODONE [Concomitant]
     Active Substance: TRAZODONE HYDROCHLORIDE
  9. PLAQUENIL                          /00072602/ [Concomitant]
     Active Substance: HYDROXYCHLOROQUINE DIPHOSPHATE
  10. CALCIUM [Concomitant]
     Active Substance: CALCIUM
  11. BONIVA [Concomitant]
     Active Substance: IBANDRONATE SODIUM
  12. FOLIC ACID. [Concomitant]
     Active Substance: FOLIC ACID
  13. VITAMIN D                          /00107901/ [Concomitant]
     Active Substance: ERGOCALCIFEROL

REACTIONS (3)
  - Pyrexia [Not Recovered/Not Resolved]
  - Systemic lupus erythematosus [Not Recovered/Not Resolved]
  - Hypoaesthesia [Not Recovered/Not Resolved]

NARRATIVE: CASE EVENT DATE: 20170228
